FAERS Safety Report 19711678 (Version 1)
Quarter: 2021Q3

REPORT INFORMATION
  Report Type: Spontaneous
  Country: US (occurrence: US)
  Receive Date: 20210817
  Receipt Date: 20210817
  Transmission Date: 20211014
  Serious: No
  Sender: FDA-Public Use
  Company Number: US-SA-2021SA267394

PATIENT
  Age: 20 Year
  Sex: Male

DRUGS (2)
  1. DUPIXENT [Suspect]
     Active Substance: DUPILUMAB
     Indication: EOSINOPHILIC OESOPHAGITIS
     Dosage: 300 MG, QOW
     Route: 058
     Dates: start: 20210420
  2. HUMIRA [Concomitant]
     Active Substance: ADALIMUMAB
     Dosage: UNK

REACTIONS (7)
  - Product use in unapproved indication [Unknown]
  - Weight fluctuation [Unknown]
  - Product dose omission issue [Unknown]
  - Infection [Unknown]
  - Quality of life decreased [Unknown]
  - Condition aggravated [Unknown]
  - Illness [Unknown]

NARRATIVE: CASE EVENT DATE: 2021
